FAERS Safety Report 13571724 (Version 4)
Quarter: 2017Q3

REPORT INFORMATION
  Report Type: Spontaneous
  Country: US (occurrence: US)
  Receive Date: 20170523
  Receipt Date: 20170707
  Transmission Date: 20171127
  Serious: No
  Sender: FDA-Public Use
  Company Number: ALCN2017US003459

PATIENT
  Sex: Female

DRUGS (2)
  1. ZADITOR [Suspect]
     Active Substance: KETOTIFEN FUMARATE
     Indication: SEASONAL ALLERGY
     Dosage: UNK
     Route: 047
     Dates: start: 20170517, end: 20170517
  2. ZADITOR [Suspect]
     Active Substance: KETOTIFEN FUMARATE
     Dosage: 2 GTT, PRN (1 TO 2 GTT)
     Route: 047
     Dates: start: 20170522, end: 20170522

REACTIONS (5)
  - Eye discharge [Recovering/Resolving]
  - Eye swelling [Recovered/Resolved]
  - Eye irritation [Recovering/Resolving]
  - Dry eye [Recovered/Resolved]
  - Ocular hyperaemia [Recovering/Resolving]

NARRATIVE: CASE EVENT DATE: 20170517
